FAERS Safety Report 12915759 (Version 5)
Quarter: 2017Q2

REPORT INFORMATION
  Report Type: Report from Study
  Country: None (occurrence: BR)
  Receive Date: 20161106
  Receipt Date: 20170518
  Transmission Date: 20170830
  Serious: Yes (Hospitalization, Other)
  Sender: FDA-Public Use
  Company Number: BR-ABBVIE-16K-020-1772337-00

PATIENT
  Age: 51 Year
  Sex: Female
  Weight: 68 kg

DRUGS (5)
  1. CYMBI [Concomitant]
     Indication: FIBROMYALGIA
     Route: 048
     Dates: start: 201604
  2. HUMIRA [Suspect]
     Active Substance: ADALIMUMAB
     Route: 058
     Dates: start: 20170104
  3. PREDNISONE. [Concomitant]
     Active Substance: PREDNISONE
     Indication: RHEUMATOID ARTHRITIS
     Route: 048
     Dates: start: 2006
  4. HUMIRA [Suspect]
     Active Substance: ADALIMUMAB
     Indication: RHEUMATOID ARTHRITIS
     Route: 058
     Dates: start: 20130622, end: 20161017
  5. METHOTREXATE. [Concomitant]
     Active Substance: METHOTREXATE
     Indication: RHEUMATOID ARTHRITIS
     Route: 048
     Dates: start: 2003

REACTIONS (14)
  - Back pain [Recovering/Resolving]
  - Tinnitus [Not Recovered/Not Resolved]
  - Ovarian cyst [Recovered/Resolved]
  - Neck pain [Recovering/Resolving]
  - Pain in extremity [Recovering/Resolving]
  - Arthralgia [Unknown]
  - Feeling hot [Not Recovered/Not Resolved]
  - Incision site erythema [Recovered/Resolved]
  - Hypoacusis [Not Recovered/Not Resolved]
  - Leiomyoma [Recovered/Resolved]
  - Joint swelling [Not Recovered/Not Resolved]
  - Wound secretion [Recovered/Resolved]
  - Joint stiffness [Not Recovered/Not Resolved]
  - Incision site haemorrhage [Recovered/Resolved]

NARRATIVE: CASE EVENT DATE: 2015
